FAERS Safety Report 4578138-8 (Version None)
Quarter: 2005Q1

REPORT INFORMATION
  Report Type: 
  Country: None (occurrence: None)
  Receive Date: 20050209
  Receipt Date: 20050125
  Transmission Date: 20050727
  Serious: Yes (Hospitalization, Other)
  Sender: FDA-Public Use
  Company Number: FR_050105700

PATIENT
  Age: 55 Year
  Sex: Female

DRUGS (4)
  1. ALIMTA [Suspect]
     Indication: NON-SMALL CELL LUNG CANCER
     Dosage: 500 MG/M2/ 1 OTHER
     Route: 050
     Dates: start: 20050112
  2. FOLIC ACID [Concomitant]
  3. VITAMIN B-12 [Concomitant]
  4. CORTICOID [Concomitant]

REACTIONS (3)
  - DIARRHOEA [None]
  - PRURITUS [None]
  - SUBILEUS [None]
